FAERS Safety Report 14134400 (Version 1)
Quarter: 2017Q4

REPORT INFORMATION
  Report Type: Spontaneous
  Country: JP (occurrence: JP)
  Receive Date: 20171027
  Receipt Date: 20171027
  Transmission Date: 20180321
  Serious: Yes (Hospitalization, Other)
  Sender: FDA-Public Use
  Company Number: JP-HORMOSAN-2017-06225

PATIENT
  Age: 93 Year
  Sex: Female

DRUGS (1)
  1. QUETIAPINE. [Suspect]
     Active Substance: QUETIAPINE
     Indication: DEMENTIA
     Dosage: UNK
     Route: 048

REACTIONS (3)
  - Adrenal insufficiency [Unknown]
  - Hypoglycaemia [Recovered/Resolved]
  - Hyponatraemia [Recovering/Resolving]
